FAERS Safety Report 7462338-3 (Version None)
Quarter: 2011Q2

REPORT INFORMATION
  Report Type: 
  Country: None (occurrence: None)
  Receive Date: 20110506
  Receipt Date: 20110503
  Transmission Date: 20111010
  Serious: Yes (Hospitalization)
  Sender: FDA-Public Use
  Company Number: FR-PFIZER INC-2011094342

PATIENT
  Age: 78 Year
  Sex: Female

DRUGS (8)
  1. PRAXILENE [Concomitant]
     Dosage: 200 MG, 2X/DAY
     Route: 048
     Dates: end: 20110226
  2. CARDENSIEL [Concomitant]
     Dosage: 2.5 MG, 1X/DAY
     Route: 048
  3. PLAVIX [Concomitant]
     Dosage: 75 MG, 1X/DAY
     Route: 048
     Dates: start: 20040101, end: 20110303
  4. ZOLOFT [Suspect]
     Indication: DEPRESSION
     Dosage: 25 MG, 2X/DAY
     Route: 048
     Dates: start: 20110101, end: 20110303
  5. EXFORGE [Concomitant]
     Dosage: 1 DF, 1X/DAY
     Route: 048
  6. TAHOR [Concomitant]
     Dosage: 40 MG, 1X/DAY
     Route: 048
     Dates: end: 20110303
  7. ASPEGIC 325 [Concomitant]
     Dosage: UNKNOWN
  8. CALCIPARINE [Concomitant]
     Dosage: UNKNOWN

REACTIONS (3)
  - DIARRHOEA [None]
  - ACUTE PRERENAL FAILURE [None]
  - COLITIS ISCHAEMIC [None]
